FAERS Safety Report 16845532 (Version 1)
Quarter: 2019Q3

REPORT INFORMATION
  Report Type: Spontaneous
  Country: JP (occurrence: JP)
  Receive Date: 20190924
  Receipt Date: 20190924
  Transmission Date: 20191005
  Serious: Yes (Hospitalization)
  Sender: FDA-Public Use
  Company Number: JP-DSJP-DSJ-2019-136138

PATIENT

DRUGS (5)
  1. PITAVASTATIN                       /06470002/ [Concomitant]
     Active Substance: PITAVASTATIN CALCIUM
     Dosage: 2MG/DAY
     Route: 065
  2. NIFEDIPINE. [Concomitant]
     Active Substance: NIFEDIPINE
     Dosage: 40MG/DAY
     Route: 065
  3. ALOGLIPTIN                         /06373002/ [Concomitant]
     Dosage: 12.5MG/DAY
     Route: 065
  4. ESOMEPRAZOLE                       /01479302/ [Concomitant]
     Active Substance: ESOMEPRAZOLE
     Dosage: 20MG/DAY
     Route: 065
  5. OLMETEC OD [Suspect]
     Active Substance: OLMESARTAN MEDOXOMIL
     Indication: PRODUCT USED FOR UNKNOWN INDICATION
     Dosage: 40MG/DAY
     Route: 065

REACTIONS (2)
  - Cholera [Recovering/Resolving]
  - Diarrhoea [Recovering/Resolving]
